FAERS Safety Report 5445143-9 (Version None)
Quarter: 2007Q3

REPORT INFORMATION
  Report Type: 
  Country: None (occurrence: None)
  Receive Date: 20070730
  Receipt Date: 20070315
  Transmission Date: 20080115
  Serious: Yes (Hospitalization, Other)
  Sender: FDA-Public Use
  Company Number: 237444

PATIENT
  Age: 39 Year
  Sex: Female

DRUGS (4)
  1. RITUXAN [Suspect]
     Indication: RHEUMATOID ARTHRITIS
     Dosage: 1000 MG, DAYS 1 + 15, INTRAVENOUS
     Route: 042
     Dates: start: 20070116
  2. ARAVA [Concomitant]
  3. ACTONEL [Concomitant]
  4. SARAFEM [Concomitant]

REACTIONS (2)
  - CELLULITIS [None]
  - ERYSIPELAS [None]
